FAERS Safety Report 23575268 (Version 1)
Quarter: 2024Q1

REPORT INFORMATION
  Report Type: Spontaneous
  Country: US (occurrence: None)
  Receive Date: 20240227
  Receipt Date: 20240227
  Transmission Date: 20240410
  Serious: No
  Sender: FDA-Public Use
  Company Number: None

PATIENT
  Sex: Male
  Weight: 99 kg

DRUGS (6)
  1. LENVIMA [Suspect]
     Active Substance: LENVATINIB
     Dosage: FREQUENCY : DAILY;?
     Route: 048
     Dates: start: 20240210
  2. PREDNISONE [Concomitant]
     Active Substance: PREDNISONE
  3. METOPROLOL [Concomitant]
     Active Substance: METOPROLOL
  4. DIGOXIN [Concomitant]
     Active Substance: DIGOXIN
  5. ELIQUIS [Concomitant]
     Active Substance: APIXABAN
  6. TAMSULOSIN [Concomitant]
     Active Substance: TAMSULOSIN

REACTIONS (1)
  - Death [None]
